FAERS Safety Report 7068339-1 (Version None)
Quarter: 2010Q4

REPORT INFORMATION
  Report Type: 
  Country: None (occurrence: None)
  Receive Date: 20101028
  Receipt Date: 20101021
  Transmission Date: 20110411
  Serious: Yes (Hospitalization)
  Sender: FDA-Public Use
  Company Number: A0888031A

PATIENT
  Age: 63 Year
  Sex: Male

DRUGS (2)
  1. LAMICTAL [Suspect]
     Indication: ANXIETY
     Route: 048
     Dates: start: 20100815, end: 20100901
  2. PROZAC [Concomitant]

REACTIONS (5)
  - AMNESIA [None]
  - CONFUSIONAL STATE [None]
  - DEMENTIA ALZHEIMER'S TYPE [None]
  - DISORIENTATION [None]
  - FEELING OF RELAXATION [None]
